FAERS Safety Report 9194618 (Version 1)
Quarter: 2013Q1

REPORT INFORMATION
  Report Type: Spontaneous
  Country: US (occurrence: US)
  Receive Date: 20130327
  Receipt Date: 20130327
  Transmission Date: 20140127
  Serious: No
  Sender: FDA-Public Use
  Company Number: US-ALLERGAN-1208484US

PATIENT
  Age: 64 Year
  Sex: Female

DRUGS (14)
  1. LATISSE 0.03% [Suspect]
     Indication: GROWTH OF EYELASHES
     Dosage: 2 GTT, QHS
     Route: 061
     Dates: start: 20120522
  2. TIROSINT 112 MCG [Concomitant]
     Indication: HYPOTHYROIDISM
     Dosage: 112 UNK, UNK
     Route: 048
  3. TIROSINT 100 MCG [Concomitant]
     Indication: HYPOTHYROIDISM
     Dosage: UNK
     Route: 048
  4. CYTOMEL [Concomitant]
     Indication: HYPOTHYROIDISM
     Dosage: UNK
     Route: 048
  5. LIALDA [Concomitant]
     Indication: COLITIS ULCERATIVE
     Dosage: UNK
     Route: 048
  6. PROMETRIUM [Concomitant]
     Indication: HORMONE REPLACEMENT THERAPY
     Dosage: UNK
  7. EVAMIST [Concomitant]
     Indication: HORMONE REPLACEMENT THERAPY
     Dosage: UNK
  8. VITAMIN D /00107901/ [Concomitant]
     Indication: VITAMIN D DEFICIENCY
     Dosage: 50000 UNITS, BI-WEEKLY
     Route: 048
  9. SINGULAIR                          /01362601/ [Concomitant]
     Indication: HYPERSENSITIVITY
     Dosage: 5 MG, QD
     Route: 048
  10. BENICAR [Concomitant]
     Indication: MIGRAINE
     Dosage: 30 MG, UNK
     Route: 048
  11. REMICADE [Concomitant]
     Indication: COLITIS ULCERATIVE
     Dosage: UNK
  12. VITAIMINS [Concomitant]
     Indication: SUPPLEMENTATION THERAPY
     Dosage: UNK
     Route: 048
  13. VARIOUS HERBS [Concomitant]
     Indication: SUPPLEMENTATION THERAPY
     Dosage: UNK
     Route: 048
  14. PATADAY [Concomitant]
     Indication: DRY EYE
     Dosage: 1 GTT, QD
     Route: 047

REACTIONS (2)
  - Eye complication associated with device [Not Recovered/Not Resolved]
  - Eye complication associated with device [Not Recovered/Not Resolved]
